FAERS Safety Report 19408220 (Version 2)
Quarter: 2021Q2

REPORT INFORMATION
  Report Type: Spontaneous
  Country: US (occurrence: US)
  Receive Date: 20210611
  Receipt Date: 20210623
  Transmission Date: 20210717
  Serious: Yes (Hospitalization, Other)
  Sender: FDA-Public Use
  Company Number: US-009507513-2104USA007090

PATIENT
  Age: 76 Year
  Sex: Female

DRUGS (1)
  1. KEYTRUDA [Suspect]
     Active Substance: PEMBROLIZUMAB
     Indication: GALLBLADDER CANCER
     Dosage: UNK
     Dates: start: 202006, end: 202101

REACTIONS (6)
  - Malignant neoplasm progression [Unknown]
  - Renal impairment [Unknown]
  - Lichen planus [Unknown]
  - Product use in unapproved indication [Unknown]
  - Thyroid gland injury [Unknown]
  - Dehydration [Unknown]

NARRATIVE: CASE EVENT DATE: 202006
